FAERS Safety Report 8397740 (Version 2)
Quarter: 2013Q3

REPORT INFORMATION
  Report Type: Spontaneous
  Country: BR (occurrence: BR)
  Receive Date: 20120209
  Receipt Date: 20130801
  Transmission Date: 20140515
  Serious: No
  Sender: FDA-Public Use
  Company Number: BR-ROCHE-1035713

PATIENT
  Sex: Female

DRUGS (2)
  1. ROACUTAN [Suspect]
     Indication: PRODUCT USED FOR UNKNOWN INDICATION
     Route: 065
  2. DIANE-35 [Concomitant]
     Indication: CONTRACEPTION
     Route: 048

REACTIONS (1)
  - Pregnancy [Unknown]
